FAERS Safety Report 24097525 (Version 3)
Quarter: 2024Q3

REPORT INFORMATION
  Report Type: Report from Study
  Country: US (occurrence: US)
  Receive Date: 20240716
  Receipt Date: 20240930
  Transmission Date: 20241017
  Serious: No
  Sender: BIOVITRUM
  Company Number: US-BIOVITRUM-2024-US-009882

PATIENT
  Age: 26 Year
  Sex: Male

DRUGS (2)
  1. DOPTELET [Suspect]
     Active Substance: AVATROMBOPAG MALEATE
     Indication: Immune thrombocytopenia
     Dosage: 20 MG DAILY
     Route: 048
     Dates: start: 20240530
  2. DOPTELET [Suspect]
     Active Substance: AVATROMBOPAG MALEATE
     Dosage: 1 TABLET ONCE DAILY
     Route: 048
     Dates: start: 20221110

REACTIONS (3)
  - Platelet count increased [Not Recovered/Not Resolved]
  - Acne [Unknown]
  - Drug intolerance [Unknown]
